FAERS Safety Report 4342211-X (Version None)
Quarter: 2004Q1

REPORT INFORMATION
  Report Type: 
  Country: None (occurrence: None)
  Receive Date: 20040329
  Receipt Date: 20040108
  Transmission Date: 20041129
  Serious: No
  Sender: FDA-Public Use
  Company Number: USA031050662

PATIENT
  Age: 11 Year
  Sex: Male
  Weight: 40 kg

DRUGS (1)
  1. STRATTERA [Suspect]
     Indication: ATTENTION DEFICIT/HYPERACTIVITY DISORDER
     Dosage: 40 MG/DAY
     Dates: start: 20030901

REACTIONS (13)
  - ABNORMAL BEHAVIOUR [None]
  - ANGER [None]
  - ANOREXIA [None]
  - APATHY [None]
  - BRADYPHRENIA [None]
  - DRUG INEFFECTIVE [None]
  - DYSPNOEA [None]
  - EPISTAXIS [None]
  - FATIGUE [None]
  - FEELING ABNORMAL [None]
  - MOOD SWINGS [None]
  - SOMNOLENCE [None]
  - WEIGHT DECREASED [None]
